FAERS Safety Report 20852070 (Version 4)
Quarter: 2022Q4

REPORT INFORMATION
  Report Type: Spontaneous
  Country: JP (occurrence: None)
  Receive Date: 20220520
  Receipt Date: 20221005
  Transmission Date: 20230113
  Serious: Yes (Other)
  Sender: FDA-Public Use
  Company Number: 2022A188301

PATIENT
  Age: 63 Year
  Sex: Male
  Weight: 52 kg

DRUGS (23)
  1. IMFINZI [Suspect]
     Active Substance: DURVALUMAB
     Indication: Small cell lung cancer
     Route: 042
     Dates: start: 20220308
  2. IMFINZI [Suspect]
     Active Substance: DURVALUMAB
     Indication: Small cell lung cancer
     Route: 042
     Dates: start: 20220308
  3. CISPLATIN [Suspect]
     Active Substance: CISPLATIN
     Indication: Small cell lung cancer
     Dosage: 4 / WEEK
     Route: 065
     Dates: start: 20220308, end: 20220308
  4. CISPLATIN [Suspect]
     Active Substance: CISPLATIN
     Indication: Small cell lung cancer
     Dosage: 4 / WEEK
     Route: 065
     Dates: start: 20220412
  5. OXYCODONE [Suspect]
     Active Substance: OXYCODONE
     Indication: Cancer pain
     Dosage: 1 / DAY
     Route: 048
     Dates: start: 20220307, end: 20220609
  6. ETOPOSIDE [Concomitant]
     Active Substance: ETOPOSIDE
     Indication: Small cell lung cancer
     Dosage: ON DAY 1, 2, AND 3 OF EACH CYCLE
     Route: 065
     Dates: start: 20220308, end: 20220310
  7. ETOPOSIDE [Concomitant]
     Active Substance: ETOPOSIDE
     Indication: Small cell lung cancer
     Dosage: ON DAY 1, 2, AND 3 OF EACH CYCLE
     Route: 065
     Dates: start: 20220412
  8. MANNITOL [Concomitant]
     Active Substance: MANNITOL
     Dosage: 4 / WEEK
     Route: 041
     Dates: start: 20220308, end: 20220607
  9. GRANISETRON [Concomitant]
     Active Substance: GRANISETRON
     Dosage: 4 / WEEK ON DAY 1, 2, AND 3 OF EACH CYCLE
     Route: 041
     Dates: start: 20220308, end: 20220609
  10. DEXAMETHASONE SODIUM PHOSPHATE [Concomitant]
     Active Substance: DEXAMETHASONE SODIUM PHOSPHATE
     Dosage: 4 / WEEK
     Route: 041
     Dates: start: 20220308, end: 20220607
  11. FOSAPREPITANT [Concomitant]
     Active Substance: FOSAPREPITANT
     Dosage: 4 / WEEK
     Route: 041
     Dates: start: 20220308
  12. POTASSIUM ASPARTATE [Concomitant]
     Active Substance: POTASSIUM ASPARTATE
     Dosage: 1 / DAY
     Route: 048
     Dates: start: 20220314
  13. SYMPROIC [Concomitant]
     Active Substance: NALDEMEDINE
     Dosage: 1 / DAY
     Route: 048
     Dates: start: 20220411, end: 20220609
  14. AMBROXOL HYDROCHLORIDE OD [Concomitant]
     Dosage: 1 / DAY
     Route: 048
     Dates: start: 20220411
  15. PRIMPERAN [Concomitant]
     Active Substance: METOCLOPRAMIDE HYDROCHLORIDE
     Route: 048
     Dates: start: 20220309
  16. BROTIZOLAM [Concomitant]
     Active Substance: BROTIZOLAM
     Route: 048
     Dates: start: 20220315
  17. TRAMADOL [Concomitant]
     Active Substance: TRAMADOL
     Dosage: 1 / DAY
     Route: 048
     Dates: start: 20220307, end: 20220330
  18. CARBOCYSTEINE [Concomitant]
     Active Substance: CARBOCYSTEINE
     Dosage: 1 / DAY
     Route: 048
     Dates: start: 20220314
  19. CELECOXIB [Concomitant]
     Active Substance: CELECOXIB
     Dosage: 1 / DAY
     Route: 048
     Dates: start: 20220307, end: 20220626
  20. CALONAL [Concomitant]
     Active Substance: ACETAMINOPHEN
     Dosage: 1 / DAY
     Route: 048
     Dates: start: 20220307
  21. VALSARTAN [Concomitant]
     Active Substance: VALSARTAN
     Route: 048
     Dates: start: 20220307
  22. AMLODIPINE [Concomitant]
     Active Substance: AMLODIPINE BESYLATE
     Dosage: 1 / DAY
     Route: 048
     Dates: start: 20220307
  23. SENNOSIDES [Concomitant]
     Active Substance: SENNOSIDES
     Dosage: 1 / DAY
     Route: 048
     Dates: start: 20220421

REACTIONS (5)
  - Pleural effusion [Recovered/Resolved]
  - Insomnia [Unknown]
  - Constipation [Not Recovered/Not Resolved]
  - Hypokalaemia [Not Recovered/Not Resolved]
  - Vomiting [Recovered/Resolved]

NARRATIVE: CASE EVENT DATE: 20220308
